FAERS Safety Report 17488165 (Version 4)
Quarter: 2021Q2

REPORT INFORMATION
  Report Type: Spontaneous
  Country: US (occurrence: US)
  Receive Date: 20200303
  Receipt Date: 20210420
  Transmission Date: 20210716
  Serious: No
  Sender: FDA-Public Use
  Company Number: US-PFIZER INC-2020093824

PATIENT
  Age: 60 Year
  Sex: Male

DRUGS (1)
  1. SUTENT [Suspect]
     Active Substance: SUNITINIB MALATE
     Indication: MALIGNANT NEOPLASM OF THYMUS
     Dosage: 37.5 MG, DAILY
     Route: 048
     Dates: start: 201910

REACTIONS (8)
  - Memory impairment [Unknown]
  - Illness [Unknown]
  - Off label use [Unknown]
  - Nasopharyngitis [Unknown]
  - Taste disorder [Unknown]
  - Eating disorder [Unknown]
  - Nausea [Unknown]
  - Oral disorder [Unknown]
